FAERS Safety Report 9154498 (Version 1)
Quarter: 2013Q1

REPORT INFORMATION
  Report Type: Spontaneous
  Country: GB (occurrence: None)
  Receive Date: 20130207
  Receipt Date: 20130207
  Transmission Date: 20140127
  Serious: Yes (Hospitalization)
  Sender: FDA-Public Use
  Company Number: AUR-APL-2013-01082

PATIENT
  Sex: Male
  Weight: 2.49 kg

DRUGS (4)
  1. CEFALEXIN [Suspect]
     Indication: PNEUMONIA ESCHERICHIA
     Dosage: 1500 MG (500 MG, 3 IN 1 D), TRANSPLACENTAL
  2. ACETYLSALICYLIC ACID (ACETYLSALICYLIC ACID) [Suspect]
     Indication: PRE-ECLAMPSIA
  3. NEORAL (CICLOSPORIN) [Suspect]
     Indication: NEPHROTIC SYNDROME
     Dosage: 100 MG (50 MG, 2 IN 1 D), TRANSPLACENTAL
  4. FERROUS SULPHATE [Suspect]
     Indication: ANAEMIA

REACTIONS (2)
  - Maternal drugs affecting foetus [None]
  - Neonatal respiratory distress syndrome [None]
